FAERS Safety Report 7209941-3 (Version None)
Quarter: 2011Q1

REPORT INFORMATION
  Report Type: 
  Country: None (occurrence: None)
  Receive Date: 20110105
  Receipt Date: 20101220
  Transmission Date: 20110831
  Serious: No
  Sender: FDA-Public Use
  Company Number: US-BIOGENIDEC-2010BI026780

PATIENT
  Age: 39 Year
  Sex: Female

DRUGS (1)
  1. TYSABRI [Suspect]
     Indication: MULTIPLE SCLEROSIS
     Route: 042
     Dates: start: 20080215, end: 20100624

REACTIONS (5)
  - COUGH [None]
  - POST-TUSSIVE VOMITING [None]
  - PERTUSSIS [None]
  - PRODUCTIVE COUGH [None]
  - DIZZINESS [None]
